FAERS Safety Report 9173859 (Version 1)
Quarter: 2013Q1

REPORT INFORMATION
  Report Type: Spontaneous
  Country: US (occurrence: None)
  Receive Date: 20130314
  Receipt Date: 20130314
  Transmission Date: 20140127
  Serious: Yes (Hospitalization)
  Sender: FDA-Public Use
  Company Number: 2013AP003618

PATIENT
  Age: 21 Year
  Sex: Female

DRUGS (1)
  1. LAMOTRIGINE TABLETS 25MG [Suspect]
     Indication: BIPOLAR DISORDER

REACTIONS (1)
  - Drug reaction with eosinophilia and systemic symptoms [None]
